FAERS Safety Report 4548140-0 (Version None)
Quarter: 2005Q1

REPORT INFORMATION
  Report Type: 
  Country: None (occurrence: None)
  Receive Date: 20050104
  Receipt Date: 20050104
  Transmission Date: 20050727
  Serious: No
  Sender: FDA-Public Use
  Company Number: None

PATIENT
  Age: 73 Year
  Sex: Female

DRUGS (4)
  1. ELOXATIN [Suspect]
  2. FLUOROURACIL [Suspect]
  3. LEUCOVORIN [Suspect]
  4. AVASTIN [Suspect]

REACTIONS (15)
  - ABDOMINAL DISTENSION [None]
  - ABDOMINAL PAIN [None]
  - ABDOMINAL TENDERNESS [None]
  - DEEP VEIN THROMBOSIS [None]
  - GASTROINTESTINAL TOXICITY [None]
  - INTERNATIONAL NORMALISED RATIO ABNORMAL [None]
  - LUNG INFILTRATION [None]
  - NAUSEA [None]
  - ORAL INTAKE REDUCED [None]
  - PAIN [None]
  - PULMONARY EMBOLISM [None]
  - RESPIRATORY RATE INCREASED [None]
  - URINARY INCONTINENCE [None]
  - URINARY TRACT INFECTION [None]
  - VOMITING [None]
